FAERS Safety Report 5163731-4 (Version None)
Quarter: 2006Q4

REPORT INFORMATION
  Report Type: 
  Country: None (occurrence: None)
  Receive Date: 20061204
  Receipt Date: 20061201
  Transmission Date: 20070319
  Serious: Yes (Hospitalization)
  Sender: FDA-Public Use
  Company Number: FR-GLAXOSMITHKLINE-B0448993A

PATIENT
  Age: 38 Year
  Sex: Male

DRUGS (1)
  1. TICARPEN [Suspect]
     Indication: INFECTION PROPHYLAXIS
     Route: 042
     Dates: start: 20061026, end: 20061026

REACTIONS (6)
  - ANAPHYLACTIC SHOCK [None]
  - BRONCHOSPASM [None]
  - DIZZINESS [None]
  - HYPOTENSION [None]
  - OXYGEN SATURATION DECREASED [None]
  - RASH [None]
